FAERS Safety Report 10354428 (Version 2)
Quarter: 2014Q3

REPORT INFORMATION
  Report Type: Spontaneous
  Country: US (occurrence: US)
  Receive Date: 20140731
  Receipt Date: 20140827
  Transmission Date: 20150326
  Serious: Yes (Hospitalization)
  Sender: FDA-Public Use
  Company Number: US-PFIZER INC-2014209738

PATIENT
  Age: 61 Year
  Sex: Female
  Weight: 71.66 kg

DRUGS (2)
  1. PHENOBARBITAL. [Concomitant]
     Active Substance: PHENOBARBITAL
     Dosage: UNK
  2. DILANTIN [Suspect]
     Active Substance: PHENYTOIN
     Indication: CONVULSION
     Dosage: 100 MG, 3X/DAY
     Route: 048
     Dates: end: 2011

REACTIONS (7)
  - Skin lesion [Not Recovered/Not Resolved]
  - Skin disorder [Not Recovered/Not Resolved]
  - Scar [Not Recovered/Not Resolved]
  - Blister [Not Recovered/Not Resolved]
  - Malaise [Unknown]
  - Wound [Not Recovered/Not Resolved]
  - Rash [Not Recovered/Not Resolved]

NARRATIVE: CASE EVENT DATE: 2011
